FAERS Safety Report 19712333 (Version 1)
Quarter: 2021Q3

REPORT INFORMATION
  Report Type: Spontaneous
  Country: US (occurrence: US)
  Receive Date: 20210817
  Receipt Date: 20210817
  Transmission Date: 20211014
  Serious: No
  Sender: FDA-Public Use
  Company Number: None

PATIENT
  Age: 92 Year
  Sex: Male

DRUGS (1)
  1. SULFUR HEXAFLUORIDE (SULFUR HEXAFLUORIDE MICROSPHERE 25MG/VIL INJ, SUSP) [Suspect]
     Active Substance: SULFUR HEXAFLUORIDE
     Indication: ATRIAL FIBRILLATION
     Route: 042
     Dates: start: 20210813, end: 20210813

REACTIONS (4)
  - Paraesthesia [None]
  - Cardiac procedure complication [None]
  - Loss of consciousness [None]
  - Anaphylactic reaction [None]

NARRATIVE: CASE EVENT DATE: 20210813
